FAERS Safety Report 15363410 (Version 5)
Quarter: 2019Q1

REPORT INFORMATION
  Report Type: Report from Study
  Country: US (occurrence: US)
  Receive Date: 20180907
  Receipt Date: 20190103
  Transmission Date: 20190417
  Serious: Yes (Death, Hospitalization)
  Sender: FDA-Public Use
  Company Number: US-ACTELION-A-NJ2018-178264

PATIENT
  Age: 62 Year
  Sex: Female
  Weight: 43.84 kg

DRUGS (9)
  1. OMEPRAZOLE. [Concomitant]
     Active Substance: OMEPRAZOLE
     Dosage: 20 MG, BID
     Route: 048
     Dates: end: 20181116
  2. TRACLEER [Suspect]
     Active Substance: BOSENTAN
     Indication: PULMONARY ARTERIAL HYPERTENSION
     Dosage: 125 MG, BID
     Route: 048
     Dates: end: 20181116
  3. OXAZEPAM. [Concomitant]
     Active Substance: OXAZEPAM
  4. ADCIRCA [Concomitant]
     Active Substance: TADALAFIL
  5. COUMADIN [Concomitant]
     Active Substance: WARFARIN SODIUM
  6. SPIRONOLACTONE. [Concomitant]
     Active Substance: SPIRONOLACTONE
     Dosage: 50 MG, QD
     Route: 048
     Dates: end: 20181116
  7. RESTASIS [Concomitant]
     Active Substance: CYCLOSPORINE
     Dosage: 1 DROP, BID BOTH EYES
     Route: 047
     Dates: end: 20181116
  8. VENTAVIS [Suspect]
     Active Substance: ILOPROST
     Indication: PULMONARY ARTERIAL HYPERTENSION
     Dosage: 5 MCG, 6 TO 9 TIMES PER DAY
     Route: 055
     Dates: end: 20181116
  9. K-TAB [Concomitant]
     Active Substance: POTASSIUM CHLORIDE

REACTIONS (17)
  - Asthenia [Unknown]
  - Bradycardia [Unknown]
  - Unresponsive to stimuli [Unknown]
  - Pneumonia [Recovering/Resolving]
  - Rectal haemorrhage [Recovered/Resolved]
  - Renal failure [Unknown]
  - Blood lactic acid increased [Unknown]
  - Cardiomegaly [Unknown]
  - Malaise [Unknown]
  - Deep vein thrombosis [Unknown]
  - Respiratory failure [Fatal]
  - Sepsis [Recovering/Resolving]
  - Respiratory tract infection [Unknown]
  - Pulse absent [Fatal]
  - Dyspnoea [Fatal]
  - Cough [Fatal]
  - Abdominal pain [Unknown]

NARRATIVE: CASE EVENT DATE: 20180728
